FAERS Safety Report 23736199 (Version 1)
Quarter: 2024Q2

REPORT INFORMATION
  Report Type: Spontaneous
  Country: CN (occurrence: CN)
  Receive Date: 20240412
  Receipt Date: 20240412
  Transmission Date: 20240715
  Serious: Yes (Other)
  Sender: FDA-Public Use
  Company Number: CN-AUROBINDO-AUR-APL-2024-016884

PATIENT
  Age: 46 Year
  Sex: Male

DRUGS (5)
  1. EVOMELA [Suspect]
     Active Substance: MELPHALAN HYDROCHLORIDE
     Indication: Lymphoma
     Dosage: 200 MILLIGRAM, ONCE A DAY
     Route: 042
     Dates: start: 20240312, end: 20240312
  2. CYTARABINE [Suspect]
     Active Substance: CYTARABINE
     Indication: Lymphoma
     Dosage: 200 MILLIGRAM, TWO TIMES A DAY
     Route: 042
     Dates: start: 20240308, end: 20240311
  3. ETOPOSIDE [Suspect]
     Active Substance: ETOPOSIDE
     Indication: Lymphoma
     Dosage: 0.2 GRAM, ONCE A DAY
     Route: 042
     Dates: start: 20240308, end: 20240311
  4. SEMUSTINE [Suspect]
     Active Substance: SEMUSTINE
     Indication: Lymphoma
     Dosage: 500 MILLIGRAM
     Route: 048
     Dates: start: 20240307, end: 20240307
  5. THIOTEPA [Suspect]
     Active Substance: THIOTEPA
     Indication: Lymphoma
     Dosage: 60 MILLIGRAM, ONCE A DAY
     Route: 042
     Dates: start: 20240313, end: 20240313

REACTIONS (2)
  - Granulocyte count decreased [Recovering/Resolving]
  - Off label use [Unknown]

NARRATIVE: CASE EVENT DATE: 20240312
